FAERS Safety Report 6793915-0 (Version None)
Quarter: 2010Q2

REPORT INFORMATION
  Report Type: 
  Country: None (occurrence: None)
  Receive Date: 20100624
  Receipt Date: 20090310
  Transmission Date: 20101027
  Serious: Yes (Other)
  Sender: FDA-Public Use
  Company Number: US-PFIZER INC-2009181327

PATIENT
  Sex: Female
  Weight: 82 kg

DRUGS (12)
  1. PROVERA [Suspect]
     Indication: MENOPAUSE
     Dosage: 5 MG, UNK
     Route: 048
     Dates: start: 19890101, end: 19960101
  2. PROVERA [Suspect]
     Indication: HOT FLUSH
  3. PROVERA [Suspect]
     Indication: OSTEOPOROSIS PROPHYLAXIS
  4. PROVERA [Suspect]
     Indication: CARDIOVASCULAR EVENT PROPHYLAXIS
  5. PREMARIN [Suspect]
     Indication: MENOPAUSE
     Dosage: 0.625 MG, UNK
     Dates: start: 19890101, end: 19960101
  6. PREMARIN [Suspect]
     Indication: HOT FLUSH
  7. PREMARIN [Suspect]
     Indication: OSTEOPOROSIS PROPHYLAXIS
  8. PREMARIN [Suspect]
     Indication: CARDIOVASCULAR EVENT PROPHYLAXIS
  9. PREMPRO [Suspect]
     Indication: MENOPAUSE
     Dosage: UNK
     Dates: start: 19960101, end: 20020101
  10. PREMPRO [Suspect]
     Indication: HOT FLUSH
  11. PREMPRO [Suspect]
     Indication: OSTEOPOROSIS PROPHYLAXIS
  12. PREMPRO [Suspect]
     Indication: CARDIOVASCULAR EVENT PROPHYLAXIS

REACTIONS (2)
  - BREAST CANCER [None]
  - NEUROPATHY PERIPHERAL [None]
